FAERS Safety Report 24889227 (Version 1)
Quarter: 2025Q1

REPORT INFORMATION
  Report Type: Spontaneous
  Country: US (occurrence: None)
  Receive Date: 20250125
  Receipt Date: 20250125
  Transmission Date: 20250409
  Serious: Yes (Hospitalization)
  Sender: FDA-CTU
  Company Number: None

PATIENT

DRUGS (5)
  1. AMBRISENTAN [Suspect]
     Active Substance: AMBRISENTAN
     Indication: Pulmonary arterial hypertension
     Dosage: FREQUENCY : DAILY;?
     Route: 048
     Dates: start: 202405
  2. REMODULIN [Suspect]
     Active Substance: TREPROSTINIL
  3. TADALAFIL [Concomitant]
     Active Substance: TADALAFIL
  4. C-TREPROSTINIL (2ML)RM [Concomitant]
  5. WINREVAIR [Concomitant]
     Active Substance: SOTATERCEPT-CSRK

REACTIONS (11)
  - Pericardial effusion [None]
  - Disease complication [None]
  - Renal disorder [None]
  - Cardiac disorder [None]
  - Fatigue [None]
  - Dizziness [None]
  - Sinus disorder [None]
  - Pain [None]
  - Sleep disorder [None]
  - Decreased appetite [None]
  - Pain [None]
